FAERS Safety Report 14749609 (Version 2)
Quarter: 2018Q2

REPORT INFORMATION
  Report Type: Report from Study
  Country: US (occurrence: US)
  Receive Date: 20180411
  Receipt Date: 20180529
  Transmission Date: 20180711
  Serious: Yes (Hospitalization, Other)
  Sender: FDA-Public Use
  Company Number: US-SHIRE-US201813304

PATIENT
  Weight: 31.6 kg

DRUGS (13)
  1. CYTARABINE. [Suspect]
     Active Substance: CYTARABINE
     Indication: B-CELL TYPE ACUTE LEUKAEMIA
     Dosage: 80 MG, UNK
     Route: 042
     Dates: start: 20170420
  2. PEGASPARGASE [Suspect]
     Active Substance: PEGASPARGASE
     Indication: B-CELL TYPE ACUTE LEUKAEMIA
     Dosage: UNK(2675 UNITS)
     Route: 042
     Dates: start: 20170504
  3. DEXAMETHASONE. [Suspect]
     Active Substance: DEXAMETHASONE
     Indication: B-CELL TYPE ACUTE LEUKAEMIA
     Dosage: 6 MG, UNK
     Route: 048
     Dates: start: 20170901
  4. DOXORUBICIN [Suspect]
     Active Substance: DOXORUBICIN
     Indication: B-CELL TYPE ACUTE LEUKAEMIA
     Dosage: 27 MG, UNK
     Route: 042
     Dates: start: 20170901
  5. VINCRISTINE [Suspect]
     Active Substance: VINCRISTINE
     Indication: B-CELL TYPE ACUTE LEUKAEMIA
     Dosage: 1.6 MG, UNK
     Route: 042
     Dates: start: 20170504
  6. THIOGUANINE [Suspect]
     Active Substance: THIOGUANINE
     Dosage: UNK UNK, 1X/WEEK(80 MG QHS X 1 NIGHTS)
     Route: 048
     Dates: start: 20170929
  7. METHOTREXATE. [Suspect]
     Active Substance: METHOTREXATE
     Indication: B-CELL TYPE ACUTE LEUKAEMIA
     Dosage: 12 MG, UNK
     Route: 037
     Dates: start: 20170420
  8. RUXOLITINIB [Suspect]
     Active Substance: RUXOLITINIB
     Indication: B-CELL TYPE ACUTE LEUKAEMIA
     Dosage: 40 MG, 2X/DAY:BID
     Route: 048
     Dates: start: 20170420
  9. THIOGUANINE [Suspect]
     Active Substance: THIOGUANINE
     Indication: B-CELL TYPE ACUTE LEUKAEMIA
     Dosage: UNK UNK, 1X/WEEK(60 MG QHS X 6 NIGHTS)
     Route: 048
     Dates: start: 20170929
  10. CYCLOPHOSPHAMIDE. [Suspect]
     Active Substance: CYCLOPHOSPHAMIDE
     Indication: B-CELL TYPE ACUTE LEUKAEMIA
     Dosage: 1100 MG, UNK
     Route: 042
     Dates: start: 20170420
  11. VINCRISTINE [Suspect]
     Active Substance: VINCRISTINE
     Dosage: 1.6 MG, UNK
     Route: 042
     Dates: start: 20170622
  12. DEXAMETHASONE. [Suspect]
     Active Substance: DEXAMETHASONE
     Dosage: 5 MG, UNK
     Route: 048
     Dates: start: 20170901
  13. RUXOLITINIB [Suspect]
     Active Substance: RUXOLITINIB
     Dosage: 40 MG, 2X/DAY:BID
     Route: 048
     Dates: start: 20170622

REACTIONS (1)
  - Febrile neutropenia [Recovered/Resolved]

NARRATIVE: CASE EVENT DATE: 20171014
